FAERS Safety Report 9155744 (Version 1)
Quarter: 2013Q1

REPORT INFORMATION
  Report Type: Spontaneous
  Country: US (occurrence: US)
  Receive Date: 20130311
  Receipt Date: 20130311
  Transmission Date: 20140127
  Serious: Yes (Hospitalization, Other)
  Sender: FDA-Public Use
  Company Number: US-BAXTER-2013BAX006557

PATIENT
  Age: 61 Year
  Sex: Female

DRUGS (4)
  1. DIANEAL LOW CALCIUM [Suspect]
     Indication: PERITONEAL DIALYSIS
     Route: 033
  2. DIANEAL LOW CALCIUM [Suspect]
     Indication: PERITONEAL DIALYSIS
     Route: 033
  3. LASIX [Suspect]
     Indication: HYPERTENSION
     Route: 048
  4. LASIX [Suspect]
     Route: 048

REACTIONS (8)
  - Cardiac disorder [Not Recovered/Not Resolved]
  - Cardiac failure [Recovering/Resolving]
  - Blood pressure decreased [Recovered/Resolved]
  - Tuberculin test positive [Unknown]
  - Adverse drug reaction [Unknown]
  - Fluid retention [Unknown]
  - Lacrimation increased [Unknown]
  - Rhinorrhoea [Unknown]
